FAERS Safety Report 7533166-5 (Version None)
Quarter: 2011Q2

REPORT INFORMATION
  Report Type: 
  Country: None (occurrence: None)
  Receive Date: 20110608
  Receipt Date: 20030426
  Transmission Date: 20111010
  Serious: Yes (Hospitalization)
  Sender: FDA-Public Use
  Company Number: PHHO2003CA05552

PATIENT
  Sex: Male

DRUGS (4)
  1. VALPROATE SODIUM [Concomitant]
     Dosage: UNKNOWN
  2. LITHIUM CARBONATE [Concomitant]
     Dosage: UNKNOWN
  3. CLOZAPINE [Suspect]
     Dosage: 300 MG, QD
  4. PRILOSEC [Concomitant]
     Indication: GASTROOESOPHAGEAL REFLUX DISEASE
     Dosage: UNKNOWN

REACTIONS (8)
  - RESPIRATORY RATE INCREASED [None]
  - PYREXIA [None]
  - DYSPNOEA [None]
  - NAUSEA [None]
  - LEUKOCYTOSIS [None]
  - BASOPHILIA [None]
  - ALOPECIA AREATA [None]
  - ABDOMINAL PAIN [None]
